FAERS Safety Report 7031149-5 (Version None)
Quarter: 2010Q4

REPORT INFORMATION
  Report Type: 
  Country: None (occurrence: None)
  Receive Date: 20101006
  Receipt Date: 20100921
  Transmission Date: 20110411
  Serious: Yes (Other)
  Sender: FDA-Public Use
  Company Number: FR-GENENTECH-306544

PATIENT
  Sex: Male
  Weight: 85 kg

DRUGS (1)
  1. LUCENTIS [Suspect]
     Indication: CHOROIDAL NEOVASCULARISATION
     Route: 031

REACTIONS (3)
  - DERMATITIS BULLOUS [None]
  - ERYTHEMA [None]
  - PRURITUS [None]
